FAERS Safety Report 7804165-0 (Version None)
Quarter: 2011Q4

REPORT INFORMATION
  Report Type: 
  Country: None (occurrence: None)
  Receive Date: 20111010
  Receipt Date: 20110929
  Transmission Date: 20120403
  Serious: Yes (Death, Hospitalization, Other)
  Sender: FDA-Public Use
  Company Number: LB-SANOFI-AVENTIS-2010SA040648

PATIENT
  Age: 61 Year
  Sex: Male
  Weight: 74.5 kg

DRUGS (22)
  1. OXALIPLATIN [Suspect]
     Route: 042
  2. RABEPRAZOLE SODIUM [Concomitant]
  3. MOTILIUM [Concomitant]
  4. ZOFRAN [Concomitant]
  5. CALCIUM GLUCONATE [Concomitant]
  6. ALL OTHER THERAPEUTIC PRODUCTS [Concomitant]
  7. XANAX [Concomitant]
  8. LEUCOVORIN CALCIUM [Suspect]
     Indication: COLORECTAL CANCER
     Route: 042
     Dates: start: 20100604, end: 20100604
  9. FLAGYL [Concomitant]
  10. MAGNE-B6 [Concomitant]
  11. DIFLUCAN [Concomitant]
  12. LEUCOVORIN CALCIUM [Suspect]
     Route: 042
  13. SOLU-MEDROL [Concomitant]
  14. ZOLOFT [Concomitant]
  15. MAGNESIUM SULFATE [Concomitant]
  16. FLUOROURACIL [Suspect]
     Indication: COLORECTAL CANCER
     Route: 042
     Dates: start: 20100604, end: 20100604
  17. FLUOROURACIL [Suspect]
     Route: 042
  18. ZANTAC [Concomitant]
  19. PRIMPERAN TAB [Concomitant]
  20. OXALIPLATIN [Suspect]
     Indication: COLORECTAL CANCER
     Route: 042
     Dates: start: 20100604, end: 20100604
  21. TINZAPARIN SODIUM [Concomitant]
  22. ALL OTHER THERAPEUTIC PRODUCTS [Concomitant]

REACTIONS (3)
  - FATIGUE [None]
  - ASTHENIA [None]
  - RENAL FAILURE [None]
